FAERS Safety Report 25066323 (Version 2)
Quarter: 2025Q3

REPORT INFORMATION
  Report Type: Spontaneous
  Country: US (occurrence: US)
  Receive Date: 20250312
  Receipt Date: 20250707
  Transmission Date: 20251020
  Serious: No
  Sender: BRISTOL-MYERS SQUIBB COMPANY
  Company Number: US-BRISTOL-MYERS SQUIBB COMPANY-2025-036635

PATIENT
  Age: 64 Year
  Sex: Male

DRUGS (2)
  1. REVLIMID [Suspect]
     Active Substance: LENALIDOMIDE
     Indication: Plasma cell myeloma
     Dosage: FREQUENCY: FOR 28 DAY CYCLE
     Route: 048
     Dates: start: 202101
  2. REVLIMID [Suspect]
     Active Substance: LENALIDOMIDE
     Dosage: FREQUENCY: 1 TIME A DAY FOR 3 DAYS ON THEN 4 DAYS OFF, EACH WEEK FOR A 28 DAY CYCLE
     Route: 048
     Dates: start: 202101

REACTIONS (3)
  - Hypoaesthesia [Unknown]
  - Off label use [Unknown]
  - Limb discomfort [Unknown]
